FAERS Safety Report 17414233 (Version 1)
Quarter: 2020Q1

REPORT INFORMATION
  Report Type: Spontaneous
  Country: US (occurrence: US)
  Receive Date: 20200213
  Receipt Date: 20200213
  Transmission Date: 20200409
  Serious: Yes (Life-Threatening, Hospitalization, Other)
  Sender: FDA-Public Use
  Company Number: US-HIKMA PHARMACEUTICALS USA INC.-US-H14001-20-50566

PATIENT
  Age: 62 Year
  Sex: Female

DRUGS (3)
  1. AZATHIOPRINE. [Suspect]
     Active Substance: AZATHIOPRINE
     Indication: IMMUNOSUPPRESSANT DRUG THERAPY
     Route: 048
  2. TACROLIMUS. [Suspect]
     Active Substance: TACROLIMUS
     Indication: IMMUNOSUPPRESSANT DRUG THERAPY
     Route: 048
  3. PREDNISONE. [Suspect]
     Active Substance: PREDNISONE
     Indication: IMMUNOSUPPRESSANT DRUG THERAPY
     Route: 048

REACTIONS (10)
  - Nephrolithiasis [Unknown]
  - Urinary tract infection [Recovered/Resolved]
  - Polyp [Unknown]
  - Confusional state [Recovered/Resolved]
  - Renal atrophy [Unknown]
  - Clostridium difficile infection [Recovered/Resolved]
  - Pancreatic neoplasm [Unknown]
  - Salmonella bacteraemia [Recovered/Resolved]
  - Endocarditis bacterial [Recovered/Resolved]
  - Diverticulum intestinal [Unknown]
